FAERS Safety Report 7107948-8 (Version None)
Quarter: 2010Q4

REPORT INFORMATION
  Report Type: 
  Country: None (occurrence: None)
  Receive Date: 20101117
  Receipt Date: 20101108
  Transmission Date: 20110411
  Serious: Yes (Other)
  Sender: FDA-Public Use
  Company Number: DE-JNJFOC-20101101846

PATIENT
  Sex: Male

DRUGS (9)
  1. CONCERTA [Suspect]
     Indication: ILL-DEFINED DISORDER
     Route: 048
     Dates: start: 20101107, end: 20101107
  2. INVEGA [Suspect]
     Indication: ILL-DEFINED DISORDER
     Route: 048
     Dates: start: 20101107, end: 20101107
  3. RITALIN [Suspect]
     Indication: ILL-DEFINED DISORDER
     Route: 048
     Dates: start: 20101107, end: 20101107
  4. TAVOR [Suspect]
     Indication: ILL-DEFINED DISORDER
     Route: 048
     Dates: start: 20101107, end: 20101107
  5. DIAZEPAM [Suspect]
     Indication: ILL-DEFINED DISORDER
     Route: 048
     Dates: start: 20101107, end: 20101107
  6. ABILIFY [Suspect]
     Indication: ILL-DEFINED DISORDER
     Route: 048
     Dates: start: 20101107, end: 20101107
  7. LAMOTRIGINE [Suspect]
     Indication: ILL-DEFINED DISORDER
     Route: 048
     Dates: start: 20101107, end: 20101107
  8. STANGYL [Suspect]
     Indication: ILL-DEFINED DISORDER
     Route: 048
     Dates: start: 20101107, end: 20101107
  9. MELNEURIN [Suspect]
     Indication: ILL-DEFINED DISORDER
     Route: 048
     Dates: start: 20101107, end: 20101107

REACTIONS (3)
  - FATIGUE [None]
  - MULTIPLE DRUG OVERDOSE INTENTIONAL [None]
  - SUICIDE ATTEMPT [None]
